FAERS Safety Report 4768696-2 (Version None)
Quarter: 2005Q3

REPORT INFORMATION
  Report Type: 
  Country: None (occurrence: None)
  Receive Date: 20050914
  Receipt Date: 20050905
  Transmission Date: 20060218
  Serious: Yes (Hospitalization, Other)
  Sender: FDA-Public Use
  Company Number: PHNU2005DE03059

PATIENT
  Sex: Female

DRUGS (2)
  1. TEGRETOL [Suspect]
     Indication: EPILEPSY
     Dosage: 600 MG/D
     Route: 048
     Dates: start: 19710101
  2. FOSAMAX [Concomitant]
     Dates: start: 20030101

REACTIONS (6)
  - CEREBRAL HAEMORRHAGE [None]
  - HYPERALDOSTERONISM [None]
  - HYPERTENSION [None]
  - HYPONATRAEMIA [None]
  - RETINOPATHY HYPERTENSIVE [None]
  - SOMNOLENCE [None]
